FAERS Safety Report 4265789-3 (Version None)
Quarter: 2004Q1

REPORT INFORMATION
  Report Type: 
  Country: None (occurrence: None)
  Receive Date: 20040107
  Receipt Date: 20040107
  Transmission Date: 20041129
  Serious: Yes (Hospitalization)
  Sender: FDA-Public Use
  Company Number: None

PATIENT
  Age: 82 Year
  Sex: Female
  Weight: 60.3284 kg

DRUGS (3)
  1. GEMCITABINE [Suspect]
     Indication: PANCREATIC CARCINOMA
     Dosage: 75 /MG/M2 WEEKLY INTRAVENOUS
     Route: 042
     Dates: start: 20031027, end: 20031114
  2. TAXOL [Suspect]
     Indication: PANCREATIC CARCINOMA
     Dosage: 40 MG/M2 WEEKLY INTRAVENOUS
     Route: 042
     Dates: start: 20031027, end: 20031124
  3. CHEMOTHERAPY [Concomitant]

REACTIONS (2)
  - HYPOTENSION [None]
  - SEPSIS [None]
